FAERS Safety Report 15975343 (Version 1)
Quarter: 2019Q1

REPORT INFORMATION
  Report Type: Spontaneous
  Country: US (occurrence: US)
  Receive Date: 20190218
  Receipt Date: 20190218
  Transmission Date: 20190418
  Serious: No
  Sender: FDA-Public Use
  Company Number: US-CELLTRION INC.-2018US023644

PATIENT

DRUGS (4)
  1. INFLECTRA [Suspect]
     Active Substance: INFLIXIMAB-DYYB
     Dosage: 500 MG EVERY 6 WEEKS
     Route: 042
     Dates: start: 20181022, end: 20181022
  2. INFLECTRA [Suspect]
     Active Substance: INFLIXIMAB-DYYB
     Dosage: 500 MG EVERY 8 WEEKS IN APRIL
     Route: 042
  3. INFLECTRA [Suspect]
     Active Substance: INFLIXIMAB-DYYB
     Indication: CROHN^S DISEASE
     Dosage: EVERY 8 WEEKS
     Route: 065
     Dates: start: 201803, end: 201803
  4. PREDNISONE. [Concomitant]
     Active Substance: PREDNISONE
     Dosage: 40 MG (DOING SHORT PREDNISONE TAPER FOR NOW AT WEEK 6; 40MG DAILY WITH TAPER AS DIRECTED)

REACTIONS (2)
  - Drug ineffective [Unknown]
  - Condition aggravated [Unknown]
